FAERS Safety Report 4943455-6 (Version None)
Quarter: 2006Q1

REPORT INFORMATION
  Report Type: 
  Country: None (occurrence: None)
  Receive Date: 20060309
  Receipt Date: 20060224
  Transmission Date: 20060701
  Serious: Yes (Other)
  Sender: FDA-Public Use
  Company Number: 2006027874

PATIENT
  Sex: Male
  Weight: 76.2043 kg

DRUGS (8)
  1. VIAGRA [Suspect]
     Indication: ERECTILE DYSFUNCTION
     Dosage: (25 MG)
     Dates: start: 20030101
  2. TADALAFIL (TADALAFIL) [Suspect]
     Indication: ERECTILE DYSFUNCTION
     Dates: start: 20060101
  3. LISINOPRIL [Concomitant]
  4. FUROSEMIDE [Concomitant]
  5. GLIPIZIDE [Concomitant]
  6. SIMVASTATIN [Concomitant]
  7. CARVEDILOL [Concomitant]
  8. POTASSIUM (POTASSIUM) [Concomitant]

REACTIONS (6)
  - CARDIAC FAILURE CONGESTIVE [None]
  - DIABETES MELLITUS [None]
  - DIZZINESS [None]
  - DRUG INEFFECTIVE [None]
  - LUNG INFECTION [None]
  - VIRAL INFECTION [None]
